FAERS Safety Report 8828834 (Version 1)
Quarter: 2012Q4

REPORT INFORMATION
  Report Type: 
  Country: UA (occurrence: UA)
  Receive Date: 20121008
  Receipt Date: 20121008
  Transmission Date: 20130627
  Serious: Yes (Death, Other)
  Sender: FDA-Public Use
  Company Number: UA-TEVA-362246ISR

PATIENT
  Age: 28 Year
  Sex: Female

DRUGS (1)
  1. METHOTREXATE [Suspect]

REACTIONS (6)
  - Petechiae [Not Recovered/Not Resolved]
  - Leukopenia [Fatal]
  - Thrombocytopenia [Fatal]
  - Cerebral haemorrhage [Fatal]
  - Coma [Fatal]
  - Aplastic anaemia [Fatal]
